FAERS Safety Report 6956194-7 (Version None)
Quarter: 2010Q3

REPORT INFORMATION
  Report Type: 
  Country: None (occurrence: None)
  Receive Date: 20100826
  Receipt Date: 20100819
  Transmission Date: 20110219
  Serious: Yes (Death, Hospitalization)
  Sender: FDA-Public Use
  Company Number: 2010-2816

PATIENT
  Sex: Male

DRUGS (1)
  1. SOMATULINE DEPOT [Suspect]
     Indication: PRODUCT USED FOR UNKNOWN INDICATION
     Dosage: (60MG),INTRAMUSCULAR
     Route: 030
     Dates: start: 20091016, end: 20091127

REACTIONS (3)
  - CONDITION AGGRAVATED [None]
  - MALAISE [None]
  - UNEVALUABLE EVENT [None]
